FAERS Safety Report 8804719 (Version 1)
Quarter: 2012Q4

REPORT INFORMATION
  Report Type: 
  Country: IN (occurrence: IN)
  Receive Date: 20120924
  Receipt Date: 20120924
  Transmission Date: 20130627
  Serious: Yes (Death)
  Sender: FDA-Public Use
  Company Number: PHHY2012IN082281

PATIENT
  Sex: Male

DRUGS (3)
  1. SEBIVO [Suspect]
     Indication: HEPATITIS
     Dosage: 600 mg
     Dates: start: 20080725
  2. PROPRANOLOL [Concomitant]
     Route: 048
  3. LASILACTONE [Concomitant]
     Indication: LIVER DISORDER
     Route: 048

REACTIONS (2)
  - Hepatic cirrhosis [Fatal]
  - General physical health deterioration [Fatal]
